FAERS Safety Report 5310831-1 (Version None)
Quarter: 2007Q2

REPORT INFORMATION
  Report Type: 
  Country: None (occurrence: None)
  Receive Date: 20070428
  Receipt Date: 20070417
  Transmission Date: 20071010
  Serious: Yes (Hospitalization, Other)
  Sender: FDA-Public Use
  Company Number: US-PFIZER INC-2006096933

PATIENT
  Sex: Female

DRUGS (3)
  1. LOPID [Suspect]
     Indication: HYPERLIPIDAEMIA
     Dosage: DAILY DOSE:1200MG-TEXT:UNKNOWN
     Route: 048
  2. VYTORIN [Suspect]
     Indication: HYPERLIPIDAEMIA
     Dosage: DAILY DOSE:40MG-FREQ:UNKNOWN
     Route: 048
     Dates: start: 20051001, end: 20060712
  3. ALL OTHER THERAPEUTIC PRODUCTS [Suspect]
     Indication: METASTATIC RENAL CELL CARCINOMA
     Dosage: DAILY DOSE:800MG-FREQ:UNKNOWN
     Route: 048
     Dates: start: 20060629, end: 20060711

REACTIONS (18)
  - ALANINE AMINOTRANSFERASE INCREASED [None]
  - ARACHNOID CYST [None]
  - ASPARTATE AMINOTRANSFERASE INCREASED [None]
  - BLOOD ALKALINE PHOSPHATASE INCREASED [None]
  - BLOOD CREATINE PHOSPHOKINASE INCREASED [None]
  - BLOOD GLUCOSE INCREASED [None]
  - BLOOD URINE PRESENT [None]
  - C-REACTIVE PROTEIN INCREASED [None]
  - JOINT DISLOCATION [None]
  - METASTATIC RENAL CELL CARCINOMA [None]
  - MUSCULAR WEAKNESS [None]
  - MYELOPATHY [None]
  - MYOGLOBIN BLOOD INCREASED [None]
  - PERIPHERAL MOTOR NEUROPATHY [None]
  - RHABDOMYOLYSIS [None]
  - SPINAL CORD COMPRESSION [None]
  - SPINAL CORD INJURY [None]
  - SPINAL OSTEOARTHRITIS [None]
